FAERS Safety Report 21925733 (Version 2)
Quarter: 2023Q1

REPORT INFORMATION
  Report Type: Spontaneous
  Country: US (occurrence: US)
  Receive Date: 20230130
  Receipt Date: 20230303
  Transmission Date: 20230418
  Serious: No
  Sender: FDA-Public Use
  Company Number: US-PFIZER INC-202300038398

PATIENT
  Age: 72 Year
  Sex: Female
  Weight: 70.748 kg

DRUGS (4)
  1. PAXLOVID [Suspect]
     Active Substance: NIRMATRELVIR\RITONAVIR
     Indication: COVID-19 treatment
     Dosage: [PF-07321332 300 MG]/[RITONAVIR 100 MG]; 2X/DAY
     Dates: start: 20230122, end: 20230126
  2. AMLODIPINE BESYLATE [Concomitant]
     Active Substance: AMLODIPINE BESYLATE
     Indication: Hypertension
     Dosage: 2.5 MG, 1X/DAY
  3. PRAMIPEXOLE [Concomitant]
     Active Substance: PRAMIPEXOLE
     Indication: Restless legs syndrome
     Dosage: 0.25 MG, 1X/DAY AT NIGHTITME
  4. ATORVASTATIN [Concomitant]
     Active Substance: ATORVASTATIN
     Indication: Lipid metabolism disorder
     Dosage: 20 MG, 1X/DAY

REACTIONS (7)
  - Pollakiuria [Recovered/Resolved]
  - Blood pressure decreased [Recovered/Resolved]
  - Paraesthesia [Recovered/Resolved]
  - Arthralgia [Recovering/Resolving]
  - Chest pain [Unknown]
  - Insomnia [Unknown]
  - Pain in extremity [Recovered/Resolved]

NARRATIVE: CASE EVENT DATE: 20230123
